FAERS Safety Report 24339236 (Version 1)
Quarter: 2024Q3

REPORT INFORMATION
  Report Type: Spontaneous
  Country: IN (occurrence: IN)
  Receive Date: 20240919
  Receipt Date: 20240919
  Transmission Date: 20241016
  Serious: Yes (Other)
  Sender: PFIZER
  Company Number: IN-PFIZER INC-PV202300103130

PATIENT
  Age: 62 Year
  Sex: Male
  Weight: 69 kg

DRUGS (3)
  1. DACOMITINIB [Suspect]
     Active Substance: DACOMITINIB
     Indication: Lung cancer metastatic
     Dosage: 30 MG, 1X/DAY (COMPLETED 12 MONTHS)
     Route: 048
     Dates: start: 20230604
  2. DACOMITINIB [Suspect]
     Active Substance: DACOMITINIB
     Indication: EGFR gene mutation
  3. METOCLOPRAMIDE HYDROCHLORIDE [Concomitant]
     Active Substance: METOCLOPRAMIDE HYDROCHLORIDE
     Dosage: AS NEEDED

REACTIONS (4)
  - Rectal haemorrhage [Unknown]
  - Rash [Unknown]
  - Diarrhoea [Unknown]
  - Weight decreased [Unknown]
